FAERS Safety Report 21042064 (Version 2)
Quarter: 2022Q3

REPORT INFORMATION
  Report Type: Report from Study
  Country: NL (occurrence: None)
  Receive Date: 20220705
  Receipt Date: 20220713
  Transmission Date: 20221027
  Serious: Yes (Death)
  Sender: FDA-Public Use
  Company Number: NL-ROCHE-3128599

PATIENT
  Age: 73 Year
  Sex: Female

DRUGS (3)
  1. TRASTUZUMAB [Suspect]
     Active Substance: TRASTUZUMAB
     Indication: Neoplasm
     Dosage: MOST CURRENT TREATMENT/ADMINISTRATION ON 02/JUN/2022
     Route: 042
     Dates: start: 20220602
  2. PERTUZUMAB [Suspect]
     Active Substance: PERTUZUMAB
     Indication: Neoplasm
     Dosage: MOST CURRENT TREATMENT/ADMINISTRATION ON 02/JUN/2022
     Route: 042
     Dates: start: 20220602
  3. MORPHINE [Concomitant]
     Active Substance: MORPHINE
     Dates: start: 20220604

REACTIONS (1)
  - Pneumonia [Fatal]

NARRATIVE: CASE EVENT DATE: 20220604
